FAERS Safety Report 4531560-8 (Version None)
Quarter: 2004Q4

REPORT INFORMATION
  Report Type: 
  Country: None (occurrence: None)
  Receive Date: 20041220
  Receipt Date: 20041214
  Transmission Date: 20050328
  Serious: Yes (Life-Threatening)
  Sender: FDA-Public Use
  Company Number: FR-BRISTOL-MYERS SQUIBB COMPANY-12795456

PATIENT
  Age: 86 Year
  Sex: Male

DRUGS (4)
  1. COUMADIN [Suspect]
     Indication: ATRIAL FIBRILLATION
     Dosage: 2MG TABLET, 3MG DAILY DOSE
     Route: 048
     Dates: end: 20041022
  2. COUMADIN [Suspect]
     Indication: CEREBROVASCULAR ACCIDENT
     Dosage: 2MG TABLET, 3MG DAILY DOSE
     Route: 048
     Dates: end: 20041022
  3. AMIODARONE HCL [Concomitant]
  4. ACEBUTOLOL [Concomitant]

REACTIONS (2)
  - GASTROINTESTINAL HAEMORRHAGE [None]
  - OESOPHAGEAL ULCER [None]
